FAERS Safety Report 18929374 (Version 1)
Quarter: 2021Q1

REPORT INFORMATION
  Report Type: Spontaneous
  Country: GB (occurrence: GB)
  Receive Date: 20210223
  Receipt Date: 20210223
  Transmission Date: 20210420
  Serious: Yes (Hospitalization)
  Sender: FDA-Public Use
  Company Number: GB-ASTRAZENECA-2021A065785

PATIENT
  Sex: Male

DRUGS (7)
  1. PROVERA [Concomitant]
     Active Substance: MEDROXYPROGESTERONE ACETATE
     Indication: HOT FLUSH
     Dosage: 20.0MG UNKNOWN
  2. ZOLADEX [Suspect]
     Active Substance: GOSERELIN ACETATE
     Dosage: 10.8 MG ADMINISTERED EVERY 12 WEEKS FOR THE LAST 9 MONTHS
     Route: 058
  3. OMEPRAZOLE. [Suspect]
     Active Substance: OMEPRAZOLE
     Dosage: 20.0MG UNKNOWN
     Route: 048
  4. CLOPIDOGREL [Concomitant]
     Active Substance: CLOPIDOGREL BISULFATE
     Indication: ANTICOAGULANT THERAPY
     Dosage: 75.0MG UNKNOWN
  5. ADCAL D3 [Concomitant]
     Active Substance: CALCIUM CARBONATE\CHOLECALCIFEROL
  6. RAMIPRIL. [Concomitant]
     Active Substance: RAMIPRIL
     Dosage: 5.0MG UNKNOWN
  7. ASPIRIN. [Concomitant]
     Active Substance: ASPIRIN
     Dosage: 75.0MG UNKNOWN

REACTIONS (4)
  - Arrhythmia [Unknown]
  - Drug ineffective [Unknown]
  - Myocardial infarction [Unknown]
  - General physical condition abnormal [Unknown]
